FAERS Safety Report 5960165-7 (Version None)
Quarter: 2008Q4

REPORT INFORMATION
  Report Type: 
  Country: None (occurrence: None)
  Receive Date: 20081120
  Receipt Date: 20081107
  Transmission Date: 20090506
  Serious: Yes (Other)
  Sender: FDA-Public Use
  Company Number: IT-ELI_LILLY_AND_COMPANY-IT200811001548

PATIENT
  Age: 54 Year
  Sex: Female

DRUGS (7)
  1. BYETTA [Suspect]
     Indication: TYPE 2 DIABETES MELLITUS
     Dosage: 5 UG, 2/D
     Route: 058
     Dates: start: 20080522, end: 20080601
  2. BYETTA [Suspect]
     Dosage: 10 UG, 2/D
     Route: 058
     Dates: start: 20080601, end: 20081107
  3. METFORMIN HCL [Concomitant]
     Dosage: 2000 MG, UNKNOWN
     Route: 065
  4. MICARDIS [Concomitant]
     Dosage: 80 MG, UNKNOWN
     Route: 065
  5. EUTIROX [Concomitant]
     Dosage: UNK, UNKNOWN
     Route: 065
  6. TOTALIP [Concomitant]
     Dosage: 20 MG, UNKNOWN
     Route: 065
  7. LEXOTAN [Concomitant]
     Dosage: UNK, UNKNOWN
     Route: 065

REACTIONS (1)
  - PANCREATITIS [None]
